FAERS Safety Report 9097842 (Version 2)
Quarter: 2013Q1

REPORT INFORMATION
  Report Type: Spontaneous
  Country: US (occurrence: US)
  Receive Date: 20130212
  Receipt Date: 20130226
  Transmission Date: 20140127
  Serious: Yes (Hospitalization, Disabling)
  Sender: FDA-Public Use
  Company Number: US-BRISTOL-MYERS SQUIBB COMPANY-17369729

PATIENT
  Age: 72 Year
  Sex: Male
  Weight: 109 kg

DRUGS (8)
  1. METFORMIN HCL [Suspect]
     Indication: DIABETES MELLITUS
     Route: 048
     Dates: start: 20091013
  2. SIMVASTATIN [Concomitant]
     Indication: HYPERCHOLESTEROLAEMIA
     Route: 048
     Dates: start: 20100212
  3. LISINOPRIL [Concomitant]
     Indication: HYPERTENSION
     Route: 048
     Dates: start: 20100212
  4. HYDROCHLOROTHIAZIDE [Concomitant]
     Indication: HYPERTENSION
     Route: 048
     Dates: start: 20100212
  5. ACETAMINOPHEN [Concomitant]
     Route: 048
     Dates: start: 20100630
  6. HYDROCODONE [Concomitant]
     Dates: start: 20100630
  7. GLUCOSAMINE [Concomitant]
     Indication: ARTHRALGIA
     Route: 048
     Dates: start: 20101015
  8. NORCO [Concomitant]
     Dosage: 1DF=5/325MG
     Route: 048
     Dates: start: 20100630

REACTIONS (1)
  - Cerebrovascular accident [Recovered/Resolved]
